FAERS Safety Report 10641993 (Version 1)
Quarter: 2014Q4

REPORT INFORMATION
  Report Type: Spontaneous
  Country: DE (occurrence: DE)
  Receive Date: 20141209
  Receipt Date: 20141209
  Transmission Date: 20150529
  Serious: Yes (Other)
  Sender: FDA-Public Use
  Company Number: DE-009507513-1412DEU003367

PATIENT
  Age: 94 Year
  Sex: Female

DRUGS (4)
  1. EXELON [Concomitant]
     Active Substance: RIVASTIGMINE TARTRATE
     Indication: DEMENTIA
  2. JANUVIA [Suspect]
     Active Substance: SITAGLIPTIN PHOSPHATE
     Indication: DIABETES MELLITUS
     Dosage: 50 MG, QD
     Route: 048
     Dates: start: 201409, end: 20141201
  3. RAMIPRIL. [Concomitant]
     Active Substance: RAMIPRIL
     Dosage: UNK
     Dates: end: 2014
  4. ASPIRIN. [Concomitant]
     Active Substance: ASPIRIN
     Dosage: UNK
     Dates: end: 2014

REACTIONS (6)
  - Blood disorder [Unknown]
  - Rash macular [Unknown]
  - Muscle tightness [Unknown]
  - Vasculitis [Unknown]
  - Subcutaneous haematoma [Unknown]
  - Wound [Unknown]

NARRATIVE: CASE EVENT DATE: 20141127
